FAERS Safety Report 9580331 (Version 1)
Quarter: 2013Q4

REPORT INFORMATION
  Report Type: Spontaneous
  Country: US (occurrence: None)
  Receive Date: 20131001
  Receipt Date: 20131001
  Transmission Date: 20140711
  Serious: Yes (Hospitalization)
  Sender: FDA-Public Use
  Company Number: None

PATIENT
  Age: 69 None
  Sex: 0
  Weight: 93 kg

DRUGS (1)
  1. CALCIUM GLUCONATE [Suspect]
     Dosage: 1 GM UD IV
     Route: 042
     Dates: start: 20130725, end: 20130725

REACTIONS (5)
  - Cough [None]
  - Rhonchi [None]
  - Wheezing [None]
  - Chest discomfort [None]
  - Dyspnoea [None]
